FAERS Safety Report 17771966 (Version 4)
Quarter: 2021Q1

REPORT INFORMATION
  Report Type: Report from Study
  Country: US (occurrence: US)
  Receive Date: 20200512
  Receipt Date: 20210210
  Transmission Date: 20210419
  Serious: Yes (Hospitalization)
  Sender: FDA-Public Use
  Company Number: US-ROCHE-2512653

PATIENT
  Age: 81 Year
  Sex: Male
  Weight: 74.8 kg

DRUGS (7)
  1. ATEZOLIZUMAB. [Suspect]
     Active Substance: ATEZOLIZUMAB
     Indication: BLADDER CANCER
     Dosage: CYCLE = 21 DAYS (MAX = 9 CYCLES) ?1200 MG IV ON DAY 1??ON 03/DEC/2019, HE RECEIVED THE LAST DOSE OF
     Route: 042
     Dates: start: 20191112, end: 20191203
  2. PAROXETINE. [Concomitant]
     Active Substance: PAROXETINE
  3. GEMCITABINE HYDROCHLORIDE. [Suspect]
     Active Substance: GEMCITABINE HYDROCHLORIDE
     Indication: BLADDER CANCER
     Dosage: 27 MG/M2
     Route: 042
     Dates: start: 20191112
  4. MITOMYCIN C [Suspect]
     Active Substance: MITOMYCIN
     Indication: BLADDER CANCER
     Dosage: 12 MG/M2
     Route: 042
     Dates: start: 20191112
  5. PYRIDIUM [Concomitant]
     Active Substance: PHENAZOPYRIDINE
  6. AMLODIPINE [Concomitant]
     Active Substance: AMLODIPINE BESYLATE
  7. ATORVASTATIN [Concomitant]
     Active Substance: ATORVASTATIN

REACTIONS (11)
  - Urinary tract obstruction [Unknown]
  - Urinary tract infection [Unknown]
  - Sepsis [Unknown]
  - Alanine aminotransferase increased [Unknown]
  - Acute kidney injury [Unknown]
  - Decreased appetite [Unknown]
  - Blood creatinine increased [Unknown]
  - Rhabdomyolysis [Unknown]
  - Fall [Unknown]
  - Muscular weakness [Unknown]
  - Aspartate aminotransferase increased [Unknown]

NARRATIVE: CASE EVENT DATE: 20191221
